FAERS Safety Report 8889385 (Version 1)
Quarter: 2012Q4

REPORT INFORMATION
  Report Type: Spontaneous
  Country: US (occurrence: None)
  Receive Date: 20121102
  Receipt Date: 20121102
  Transmission Date: 20130627
  Serious: No
  Sender: FDA-Public Use
  Company Number: None

PATIENT
  Sex: Female

DRUGS (1)
  1. METHIMAZOLE [Suspect]
     Route: 048

REACTIONS (7)
  - Pyrexia [None]
  - Rash [None]
  - Pruritus [None]
  - Nausea [None]
  - Vomiting [None]
  - Diarrhoea [None]
  - Blood alkaline phosphatase increased [None]
